FAERS Safety Report 5708506-X (Version None)
Quarter: 2008Q2

REPORT INFORMATION
  Report Type: 
  Country: None (occurrence: None)
  Receive Date: 20080417
  Receipt Date: 20070705
  Transmission Date: 20081010
  Serious: Yes (Hospitalization)
  Sender: FDA-Public Use
  Company Number: US-BRISTOL-MYERS SQUIBB COMPANY-13838412

PATIENT
  Age: 73 Year
  Sex: Male

DRUGS (1)
  1. PARAPLATIN LYO [Suspect]
     Indication: SMALL CELL LUNG CANCER STAGE UNSPECIFIED
     Route: 042
     Dates: start: 20070702, end: 20070703

REACTIONS (1)
  - MEDICAL OBSERVATION [None]
